FAERS Safety Report 15539516 (Version 1)
Quarter: 2018Q4

REPORT INFORMATION
  Report Type: Spontaneous
  Country: GB (occurrence: GB)
  Receive Date: 20181023
  Receipt Date: 20181023
  Transmission Date: 20190205
  Serious: Yes (Other)
  Sender: FDA-Public Use
  Company Number: GB-DRREDDYS-GER/UKI/18/0104832

PATIENT
  Age: 51 Year
  Sex: Female
  Weight: 101.6 kg

DRUGS (1)
  1. AMLODIPINE [Suspect]
     Active Substance: AMLODIPINE BESYLATE
     Indication: HYPERTENSION
     Route: 048
     Dates: start: 20170106, end: 20180924

REACTIONS (15)
  - Abnormal weight gain [Recovered/Resolved]
  - Tremor [Recovered/Resolved with Sequelae]
  - Discomfort [Recovered/Resolved]
  - Dyskinesia [Recovered/Resolved]
  - Vision blurred [Recovered/Resolved]
  - Sleep disorder [Recovered/Resolved]
  - Balance disorder [Recovered/Resolved]
  - Chest pain [Recovered/Resolved]
  - Dizziness [Recovered/Resolved]
  - Peripheral swelling [Recovered/Resolved]
  - Pain [Recovered/Resolved]
  - Palpitations [Recovered/Resolved]
  - Fatigue [Recovered/Resolved]
  - Blepharospasm [Not Recovered/Not Resolved]
  - Skin discolouration [Recovered/Resolved]

NARRATIVE: CASE EVENT DATE: 20170804
